FAERS Safety Report 4655330-5 (Version None)
Quarter: 2005Q2

REPORT INFORMATION
  Report Type: 
  Country: None (occurrence: None)
  Receive Date: 20050331
  Receipt Date: 20040817
  Transmission Date: 20051028
  Serious: No
  Sender: FDA-Public Use
  Company Number: US087594

PATIENT
  Age: 62 Year
  Sex: Female
  Weight: 79 kg

DRUGS (2)
  1. NEULASTA [Suspect]
     Indication: CHEMOTHERAPY
     Dosage: 6 MG, 1 IN 1 DAYS, SC
     Route: 058
     Dates: start: 20040811, end: 20040811
  2. GEMCITABINE HCL [Concomitant]

REACTIONS (3)
  - INJECTION SITE REACTION [None]
  - NAUSEA [None]
  - VOMITING [None]
